FAERS Safety Report 13664404 (Version 3)
Quarter: 2020Q1

REPORT INFORMATION
  Report Type: Spontaneous
  Country: JP (occurrence: JP)
  Receive Date: 20170619
  Receipt Date: 20200207
  Transmission Date: 20200409
  Serious: Yes (Death, Other)
  Sender: FDA-Public Use
  Company Number: JP-JNJFOC-20170615598

PATIENT
  Age: 76 Year
  Sex: Male
  Weight: 38.8 kg

DRUGS (8)
  1. FEBURIC [Concomitant]
     Active Substance: FEBUXOSTAT
     Indication: HYPERURICAEMIA
     Dosage: DAILY DOSE 10 MG
     Route: 048
     Dates: end: 20170524
  2. ARICEPT [Concomitant]
     Active Substance: DONEPEZIL HYDROCHLORIDE
     Indication: DEMENTIA
     Dosage: UNK
     Route: 048
     Dates: end: 20170524
  3. RIVAROXABAN [Suspect]
     Active Substance: RIVAROXABAN
     Indication: CEREBRAL ARTERY EMBOLISM
  4. PREDNISOLONE. [Concomitant]
     Active Substance: PREDNISOLONE
     Indication: DERMATITIS
     Dosage: DAILY DOSE 5 MG
     Route: 048
     Dates: end: 20170524
  5. RIVAROXABAN [Suspect]
     Active Substance: RIVAROXABAN
     Indication: PERIPHERAL EMBOLISM
  6. LANSOPRAZOLE. [Concomitant]
     Active Substance: LANSOPRAZOLE
     Indication: GASTRITIS
     Dosage: DAILY DOSE 15 MG
     Route: 048
     Dates: end: 20170524
  7. RIVAROXABAN [Suspect]
     Active Substance: RIVAROXABAN
     Indication: ATRIAL FIBRILLATION
     Dosage: UNK
     Route: 048
     Dates: start: 20141121, end: 20170524
  8. FUROSEMIDE. [Concomitant]
     Active Substance: FUROSEMIDE
     Indication: CARDIAC FAILURE
     Dosage: DAILY DOSE 40 MG
     Route: 048
     Dates: end: 20170524

REACTIONS (12)
  - Acute kidney injury [Unknown]
  - Renal embolism [Fatal]
  - Cerebral infarction [Fatal]
  - Peripheral embolism [Fatal]
  - Multiple organ dysfunction syndrome [Fatal]
  - Therapeutic product effect incomplete [Unknown]
  - Peripheral embolism [Fatal]
  - Idiopathic interstitial pneumonia [Fatal]
  - Renal infarct [Unknown]
  - Cerebral artery embolism [Fatal]
  - Embolism arterial [Fatal]
  - Peripheral artery occlusion [Fatal]

NARRATIVE: CASE EVENT DATE: 20170524
